FAERS Safety Report 9696444 (Version 1)
Quarter: 2013Q4

REPORT INFORMATION
  Report Type: Spontaneous
  Country: GB (occurrence: None)
  Receive Date: 20131115
  Receipt Date: 20131115
  Transmission Date: 20140711
  Serious: Yes (Hospitalization)
  Sender: FDA-Public Use
  Company Number: IPC201311-000449

PATIENT
  Age: 28 Year
  Sex: Male

DRUGS (1)
  1. METOCLOPRAMIDE HYDROCHLORIDE [Suspect]
     Indication: VOMITING

REACTIONS (8)
  - Oculogyric crisis [None]
  - Dystonia [None]
  - Ataxia [None]
  - Grip strength decreased [None]
  - Dysgraphia [None]
  - Dyskinesia [None]
  - Arteriovenous malformation [None]
  - Cerebral arteriovenous malformation haemorrhagic [None]
